FAERS Safety Report 13290120 (Version 1)
Quarter: 2017Q1

REPORT INFORMATION
  Report Type: Spontaneous
  Country: US (occurrence: US)
  Receive Date: 20170302
  Receipt Date: 20170302
  Transmission Date: 20170428
  Serious: No
  Sender: FDA-Public Use
  Company Number: US-GLAXOSMITHKLINE-US2017028946

PATIENT
  Age: 52 Year
  Sex: Male

DRUGS (1)
  1. NUCALA [Suspect]
     Active Substance: MEPOLIZUMAB
     Indication: ASTHMA
     Dosage: UNK, MONTHLY
     Route: 058
     Dates: start: 20170120

REACTIONS (7)
  - Fatigue [Unknown]
  - Ill-defined disorder [Unknown]
  - Dizziness [Unknown]
  - Wheezing [Unknown]
  - Drug ineffective [Unknown]
  - Throat irritation [Unknown]
  - Somnolence [Recovered/Resolved]

NARRATIVE: CASE EVENT DATE: 2017
